FAERS Safety Report 25161773 (Version 2)
Quarter: 2025Q2

REPORT INFORMATION
  Report Type: Spontaneous
  Country: IL (occurrence: IL)
  Receive Date: 20250404
  Receipt Date: 20250516
  Transmission Date: 20250716
  Serious: Yes (Other)
  Sender: ALEXION PHARMACEUTICALS
  Company Number: IL-ASTRAZENECA-202503ISR023704IL

PATIENT

DRUGS (1)
  1. ULTOMIRIS [Suspect]
     Active Substance: RAVULIZUMAB-CWVZ
     Indication: Paroxysmal nocturnal haemoglobinuria
     Route: 065

REACTIONS (3)
  - Extravascular haemolysis [Unknown]
  - Haemolysis [Not Recovered/Not Resolved]
  - Blood lactate dehydrogenase increased [Unknown]
